FAERS Safety Report 8512925-6 (Version None)
Quarter: 2012Q3

REPORT INFORMATION
  Report Type: 
  Country: None (occurrence: None)
  Receive Date: 20120716
  Receipt Date: 20120706
  Transmission Date: 20120928
  Serious: Yes (Other)
  Sender: FDA-Public Use
  Company Number: US-ELI_LILLY_AND_COMPANY-US201207002124

PATIENT
  Age: 56 Year
  Sex: Male

DRUGS (10)
  1. EFFIENT [Suspect]
     Dosage: UNK
     Dates: start: 20120530
  2. LISINOPRIL [Concomitant]
     Dosage: 20 MG, UNK
  3. LOPRESSOR [Concomitant]
     Dosage: 25 MG, BID
  4. EFFIENT [Suspect]
     Indication: STENT PLACEMENT
     Dosage: 10 MG, QD
     Dates: start: 20120411, end: 20120511
  5. PAROXETINE [Concomitant]
     Dosage: 20 MG, BID
  6. BUSPAR [Concomitant]
     Dosage: 10 MG, BID
  7. PRAVASTATIN [Concomitant]
     Dosage: 80 MG, EACH EVENING
  8. ASPIRIN [Concomitant]
  9. NITROGLYCERIN [Concomitant]
     Dosage: UNK, PRN
  10. PROZAC [Concomitant]
     Dosage: 40 MG, QD

REACTIONS (2)
  - MYOCARDIAL INFARCTION [None]
  - DRUG DOSE OMISSION [None]
